FAERS Safety Report 21195988 (Version 2)
Quarter: 2022Q3

REPORT INFORMATION
  Report Type: Spontaneous
  Country: US (occurrence: US)
  Receive Date: 20220810
  Receipt Date: 20220811
  Transmission Date: 20221026
  Serious: No
  Sender: FDA-Public Use
  Company Number: US-PFIZER INC-202201045653

PATIENT
  Age: 72 Year
  Sex: Female
  Weight: 58.97 kg

DRUGS (1)
  1. PAXLOVID [Suspect]
     Active Substance: NIRMATRELVIR\RITONAVIR
     Indication: COVID-19 treatment
     Dosage: [PF-07321332 300 MG]/[RITONAVIR 100 MG]; 2X/DAY
     Dates: start: 202208

REACTIONS (5)
  - Taste disorder [Unknown]
  - Dysgeusia [Unknown]
  - Asthenia [Unknown]
  - Dizziness [Unknown]
  - Dry mouth [Unknown]

NARRATIVE: CASE EVENT DATE: 20220801
